FAERS Safety Report 10861547 (Version 1)
Quarter: 2015Q1

REPORT INFORMATION
  Report Type: Report from Study
  Country: FR (occurrence: FR)
  Receive Date: 20150223
  Receipt Date: 20150223
  Transmission Date: 20150721
  Serious: Yes (Death, Hospitalization, Other)
  Sender: FDA-Public Use
  Company Number: FR-ROCHE-1540450

PATIENT
  Age: 66 Year
  Sex: Female

DRUGS (16)
  1. TOCILIZUMAB [Suspect]
     Active Substance: TOCILIZUMAB
     Indication: RHEUMATOID ARTHRITIS
     Route: 041
     Dates: start: 20100324
  2. CORTANCYL [Concomitant]
     Active Substance: PREDNISONE
     Route: 065
  3. ARAVA [Concomitant]
     Active Substance: LEFLUNOMIDE
     Route: 065
  4. METHOTREXATE [Concomitant]
     Active Substance: METHOTREXATE
     Dosage: SINGLE DOSE ON 23-MAY-2006, 22-NOV-2007, 13-NOV-2008 AND 14-MAY-2009.
     Route: 065
  5. RITUXIMAB [Suspect]
     Active Substance: RITUXIMAB
     Route: 041
     Dates: start: 20081113
  6. METHOTREXATE [Concomitant]
     Active Substance: METHOTREXATE
     Dosage: FROM 17/FEB/2015 TO 17/MAR/2015
     Route: 065
  7. RITUXIMAB [Suspect]
     Active Substance: RITUXIMAB
     Route: 041
     Dates: start: 20060523
  8. RITUXIMAB [Suspect]
     Active Substance: RITUXIMAB
     Route: 041
     Dates: start: 20071122
  9. RITUXIMAB [Suspect]
     Active Substance: RITUXIMAB
     Indication: RHEUMATOID ARTHRITIS
     Dosage: FOUR CYCLES
     Route: 041
     Dates: start: 20050217, end: 20050317
  10. RITUXIMAB [Suspect]
     Active Substance: RITUXIMAB
     Route: 041
     Dates: start: 20090514
  11. KINERET [Concomitant]
     Active Substance: ANAKINRA
     Dosage: FROM 17/FEB/2015 TO 17/MAR/2015
     Route: 065
  12. ARAVA [Concomitant]
     Active Substance: LEFLUNOMIDE
     Route: 065
     Dates: start: 200902
  13. HUMIRA [Concomitant]
     Active Substance: ADALIMUMAB
     Indication: OSTEITIS
     Dosage: 40
     Route: 065
     Dates: start: 201112
  14. CORTANCYL [Concomitant]
     Active Substance: PREDNISONE
     Indication: OSTEITIS
     Dosage: FROM 17/FEB/2015 TO 17/MAR/2015?SINGLE DOSE ON 23-MAY-2006, 22-NOV-2007, 13-NOV-2008 AND 14-MAY-2009
     Route: 065
  15. HUMIRA [Concomitant]
     Active Substance: ADALIMUMAB
     Route: 065
     Dates: start: 20120308
  16. CORTANCYL [Concomitant]
     Active Substance: PREDNISONE
     Route: 065

REACTIONS (11)
  - Cardiopulmonary failure [Unknown]
  - Bronchitis pneumococcal [Recovered/Resolved]
  - Clostridium difficile infection [Recovered/Resolved]
  - Sepsis [Unknown]
  - Diarrhoea [Unknown]
  - Vomiting [Unknown]
  - Cardiac failure [Fatal]
  - Osteitis [Not Recovered/Not Resolved]
  - Lung infection [Not Recovered/Not Resolved]
  - Bronchopneumonia [Not Recovered/Not Resolved]
  - Respiratory distress [Fatal]

NARRATIVE: CASE EVENT DATE: 201012
